FAERS Safety Report 5551845-6 (Version None)
Quarter: 2007Q4

REPORT INFORMATION
  Report Type: 
  Country: None (occurrence: None)
  Receive Date: 20071212
  Receipt Date: 20071130
  Transmission Date: 20080405
  Serious: Yes (Other)
  Sender: FDA-Public Use
  Company Number: FR-PFIZER INC-2007096280

PATIENT
  Sex: Female
  Weight: 45 kg

DRUGS (2)
  1. LYRICA [Suspect]
  2. TRAMADOL HCL [Concomitant]

REACTIONS (7)
  - ABDOMINAL PAIN UPPER [None]
  - ANOREXIA [None]
  - HEADACHE [None]
  - MENSTRUATION DELAYED [None]
  - NAUSEA [None]
  - POLLAKIURIA [None]
  - VERTIGO [None]
